FAERS Safety Report 21374293 (Version 1)
Quarter: 2022Q3

REPORT INFORMATION
  Report Type: Spontaneous
  Country: DK (occurrence: DK)
  Receive Date: 20220926
  Receipt Date: 20220926
  Transmission Date: 20221027
  Serious: Yes (Other)
  Sender: FDA-Public Use
  Company Number: DK-NOVARTISPH-NVSC2022DK214331

PATIENT

DRUGS (1)
  1. ERELZI [Suspect]
     Active Substance: ETANERCEPT-SZZS
     Indication: Product used for unknown indication
     Dosage: UNK
     Route: 065

REACTIONS (7)
  - Oral mucosal blistering [Recovered/Resolved]
  - Vulvovaginal mycotic infection [Recovered/Resolved]
  - Palpitations [Recovered/Resolved]
  - Ear pain [Recovered/Resolved]
  - Insomnia [Recovered/Resolved]
  - Urinary tract infection [Recovered/Resolved]
  - Psoriasis [Recovered/Resolved]
